FAERS Safety Report 15854591 (Version 3)
Quarter: 2019Q3

REPORT INFORMATION
  Report Type: Spontaneous
  Country: JP (occurrence: JP)
  Receive Date: 20190122
  Receipt Date: 20190703
  Transmission Date: 20191004
  Serious: Yes (Other)
  Sender: FDA-Public Use
  Company Number: JP-PFIZER INC-2019020684

PATIENT
  Age: 39 Year
  Sex: Female

DRUGS (2)
  1. CABASER [Suspect]
     Active Substance: CABERGOLINE
     Indication: PITUITARY TUMOUR BENIGN
  2. CABASER [Suspect]
     Active Substance: CABERGOLINE
     Indication: HYPERPROLACTINAEMIA
     Dosage: UNK, WEEKLY
     Route: 048

REACTIONS (1)
  - Hemianopia [Not Recovered/Not Resolved]
